FAERS Safety Report 25930022 (Version 1)
Quarter: 2025Q4

REPORT INFORMATION
  Report Type: Spontaneous
  Country: US (occurrence: US)
  Receive Date: 20251016
  Receipt Date: 20251016
  Transmission Date: 20260118
  Serious: Yes (Other)
  Sender: MERCK SHARP & DOHME LLC
  Company Number: US-009507513-2339994

PATIENT
  Sex: Male

DRUGS (3)
  1. KEYTRUDA [Suspect]
     Active Substance: PEMBROLIZUMAB
     Indication: Squamous cell carcinoma of head and neck
  2. LENVIMA [Suspect]
     Active Substance: LENVATINIB
     Indication: Squamous cell carcinoma of head and neck
  3. LENVIMA [Suspect]
     Active Substance: LENVATINIB
     Indication: Squamous cell carcinoma of head and neck

REACTIONS (3)
  - Osteonecrosis of jaw [Recovering/Resolving]
  - Gastric perforation [Recovering/Resolving]
  - Product use issue [Unknown]
